FAERS Safety Report 5246044-1 (Version None)
Quarter: 2007Q1

REPORT INFORMATION
  Report Type: 
  Country: None (occurrence: None)
  Receive Date: 20061201
  Receipt Date: 20060724
  Transmission Date: 20070707
  Serious: No
  Sender: FDA-Public Use
  Company Number: 2006PV018147

PATIENT
  Age: 78 Year
  Sex: Male
  Weight: 96.1626 kg

DRUGS (6)
  1. BYETTA [Suspect]
     Dosage: 5 MCG,QAM;SC, 10 MCG;QPM; SC, 5 MCG;BID;SC
     Route: 058
     Dates: start: 20060201, end: 20060501
  2. BYETTA [Suspect]
     Dosage: 5 MCG,QAM;SC, 10 MCG;QPM; SC, 5 MCG;BID;SC
     Route: 058
     Dates: start: 20060501
  3. BYETTA [Suspect]
     Dosage: 5 MCG,QAM;SC, 10 MCG;QPM; SC, 5 MCG;BID;SC
     Route: 058
     Dates: start: 20060501
  4. BYETTA [Suspect]
  5. AMARYL [Concomitant]
  6. LANTUS [Concomitant]

REACTIONS (1)
  - BLOOD GLUCOSE ABNORMAL [None]
